FAERS Safety Report 6857521-1 (Version None)
Quarter: 2010Q3

REPORT INFORMATION
  Report Type: 
  Country: None (occurrence: None)
  Receive Date: 20100719
  Receipt Date: 20080130
  Transmission Date: 20110219
  Serious: No
  Sender: FDA-Public Use
  Company Number: US-PFIZER INC-2008008844

PATIENT
  Sex: Male
  Weight: 70.4 kg

DRUGS (13)
  1. CHANTIX [Suspect]
     Indication: SMOKING CESSATION THERAPY
     Dates: start: 20080123
  2. DEPAKOTE [Concomitant]
     Indication: MENTAL DISORDER
  3. ZYPREXA [Concomitant]
     Indication: MENTAL DISORDER
  4. RESTORIL [Concomitant]
     Indication: MENTAL DISORDER
  5. BUSPAR [Concomitant]
     Indication: MENTAL DISORDER
  6. KLONOPIN [Concomitant]
     Indication: MENTAL DISORDER
  7. SEROQUEL [Concomitant]
     Indication: MENTAL DISORDER
  8. LIPITOR [Concomitant]
     Indication: BLOOD CHOLESTEROL INCREASED
  9. WELCHOL [Concomitant]
     Indication: BLOOD CHOLESTEROL INCREASED
  10. DRUG, UNSPECIFIED [Concomitant]
  11. FOLIC ACID [Concomitant]
  12. VITAMIN E [Concomitant]
  13. CENTRUM SILVER [Concomitant]

REACTIONS (2)
  - DYSGEUSIA [None]
  - FLATULENCE [None]
